FAERS Safety Report 5838588-6 (Version None)
Quarter: 2008Q3

REPORT INFORMATION
  Report Type: 
  Country: None (occurrence: None)
  Receive Date: 20080808
  Receipt Date: 20080519
  Transmission Date: 20090109
  Serious: No
  Sender: FDA-Public Use
  Company Number: A0726877A

PATIENT
  Age: 4 Year
  Sex: Female
  Weight: 18.2 kg

DRUGS (1)
  1. ALTABAX [Suspect]
     Indication: IMPETIGO
     Route: 061
     Dates: start: 20080101, end: 20080101

REACTIONS (1)
  - APPLICATION SITE ERYTHEMA [None]
